FAERS Safety Report 21314803 (Version 1)
Quarter: 2022Q3

REPORT INFORMATION
  Report Type: Spontaneous
  Country: US (occurrence: None)
  Receive Date: 20220909
  Receipt Date: 20220909
  Transmission Date: 20221026
  Serious: No
  Sender: FDA-Public Use
  Company Number: US-ARIS GLOBAL-202111-2030

PATIENT
  Sex: Female
  Weight: 54.480 kg

DRUGS (6)
  1. OXERVATE [Suspect]
     Active Substance: CENEGERMIN-BKBJ
     Indication: Neurotrophic keratopathy
     Route: 047
  2. DEXILANT [Concomitant]
     Active Substance: DEXLANSOPRAZOLE
  3. NORTRIPTYLINE [Concomitant]
     Active Substance: NORTRIPTYLINE
  4. ARIPIPRAZOLE [Concomitant]
     Active Substance: ARIPIPRAZOLE
  5. LATANOPROST [Concomitant]
     Active Substance: LATANOPROST
  6. DORZOLAMIDE [Concomitant]
     Active Substance: DORZOLAMIDE

REACTIONS (3)
  - Eye pain [Recovering/Resolving]
  - Vision blurred [Not Recovered/Not Resolved]
  - Photophobia [Not Recovered/Not Resolved]
